FAERS Safety Report 12148071 (Version 1)
Quarter: 2016Q1

REPORT INFORMATION
  Report Type: Spontaneous
  Country: US (occurrence: US)
  Receive Date: 20160304
  Receipt Date: 20160304
  Transmission Date: 20160526
  Serious: Yes (Disabling, Other)
  Sender: FDA-Public Use
  Company Number: US-SA-2016SA038551

PATIENT
  Age: 58 Year
  Sex: Female

DRUGS (9)
  1. TOUJEO [Suspect]
     Active Substance: INSULIN GLARGINE
     Indication: TYPE 2 DIABETES MELLITUS
     Dosage: DOSE:60 UNIT(S)
     Route: 065
  2. LASIX [Concomitant]
     Active Substance: FUROSEMIDE
  3. LANTUS [Suspect]
     Active Substance: INSULIN GLARGINE
     Indication: DIABETES MELLITUS
     Dosage: DOSE:60 UNIT(S)
     Route: 065
     Dates: start: 20160222
  4. SOLOSTAR [Concomitant]
     Active Substance: DEVICE
     Dates: start: 20160222
  5. SOLOSTAR [Concomitant]
     Active Substance: DEVICE
     Dates: start: 20160222
  6. APIDRA SOLOSTAR [Suspect]
     Active Substance: INSULIN GLULISINE
     Indication: DIABETES MELLITUS
     Dosage: BEFORE MEALS DOSE:25 UNIT(S)
     Route: 065
     Dates: start: 20160222
  7. NOVOLOG [Concomitant]
     Active Substance: INSULIN ASPART
  8. LANTUS [Suspect]
     Active Substance: INSULIN GLARGINE
     Indication: DIABETES MELLITUS
     Route: 065
  9. TOUJEO [Suspect]
     Active Substance: INSULIN GLARGINE
     Indication: TYPE 2 DIABETES MELLITUS
     Dosage: DOSE:60 UNIT(S)
     Route: 065
     Dates: start: 2015

REACTIONS (8)
  - Cardiac operation [Unknown]
  - Cerebrovascular accident [Unknown]
  - Insomnia [Unknown]
  - Disability [Unknown]
  - Dehydration [Unknown]
  - Blood glucose increased [Unknown]
  - Joint swelling [Unknown]
  - Vision blurred [Unknown]

NARRATIVE: CASE EVENT DATE: 201412
